FAERS Safety Report 10722261 (Version 3)
Quarter: 2015Q3

REPORT INFORMATION
  Report Type: Report from Study
  Country: US (occurrence: US)
  Receive Date: 20150119
  Receipt Date: 20150819
  Transmission Date: 20151125
  Serious: No
  Sender: FDA-Public Use
  Company Number: US-GILEAD-2015-0132528

PATIENT
  Age: 80 Year
  Sex: Female

DRUGS (3)
  1. AMBRISENTAN [Suspect]
     Active Substance: AMBRISENTAN
     Indication: PULMONARY ARTERIAL HYPERTENSION
     Dosage: 10 MG, QD
     Route: 065
     Dates: start: 201412
  2. AMBRISENTAN [Suspect]
     Active Substance: AMBRISENTAN
     Dosage: UNK
     Route: 065
     Dates: start: 20140523
  3. WARFARIN [Concomitant]
     Active Substance: WARFARIN

REACTIONS (5)
  - Pruritus [Unknown]
  - Erythema [Unknown]
  - Dermatitis [Unknown]
  - Urticaria [Unknown]
  - Rash [Unknown]
